FAERS Safety Report 5412109-4 (Version None)
Quarter: 2007Q3

REPORT INFORMATION
  Report Type: 
  Country: None (occurrence: None)
  Receive Date: 20070813
  Receipt Date: 20070806
  Transmission Date: 20080115
  Serious: Yes (Hospitalization)
  Sender: FDA-Public Use
  Company Number: NL-AVENTIS-200717001GDDC

PATIENT
  Age: 57 Year
  Sex: Male

DRUGS (7)
  1. ARAVA [Suspect]
     Indication: RHEUMATOID ARTHRITIS
     Route: 048
  2. CALCICHEW                          /00108001/ [Concomitant]
     Dosage: DOSE: 1 DOSE FORM
     Route: 048
  3. NAPROXEN [Concomitant]
     Route: 048
  4. OMEPRAZOLE [Concomitant]
     Route: 048
  5. PREDNISONE TAB [Concomitant]
     Route: 048
  6. PARACETAMOL [Concomitant]
     Dosage: DOSE: 1 DF
     Route: 048
  7. INHIBIN [Concomitant]
     Dosage: DOSE: 1 DF

REACTIONS (2)
  - DIARRHOEA [None]
  - PRESYNCOPE [None]
